FAERS Safety Report 24830953 (Version 1)
Quarter: 2025Q1

REPORT INFORMATION
  Report Type: Spontaneous
  Country: US (occurrence: US)
  Receive Date: 20250110
  Receipt Date: 20250110
  Transmission Date: 20250409
  Serious: No
  Sender: INCYTE
  Company Number: US-INCYTE CORPORATION-2024IN008731

PATIENT

DRUGS (1)
  1. JAKAFI [Suspect]
     Active Substance: RUXOLITINIB
     Dosage: 20 MILLIGRAM, QOD
     Route: 048

REACTIONS (4)
  - Hyperhidrosis [Unknown]
  - Epistaxis [Unknown]
  - Dizziness [Unknown]
  - Nausea [Unknown]
